FAERS Safety Report 19653227 (Version 4)
Quarter: 2021Q4

REPORT INFORMATION
  Report Type: Report from Study
  Country: US (occurrence: US)
  Receive Date: 20210803
  Receipt Date: 20211022
  Transmission Date: 20220303
  Serious: Yes (Hospitalization, Other)
  Sender: FDA-Public Use
  Company Number: 2021A121443

PATIENT
  Age: 924 Month
  Sex: Female

DRUGS (5)
  1. TAGRISSO [Suspect]
     Active Substance: OSIMERTINIB
     Indication: Non-small cell lung cancer
     Dosage: UNKNOWN
     Route: 048
  2. TAGRISSO [Suspect]
     Active Substance: OSIMERTINIB
     Indication: Non-small cell lung cancer
     Route: 048
     Dates: start: 20200518, end: 20210707
  3. TAGRISSO [Suspect]
     Active Substance: OSIMERTINIB
     Indication: Non-small cell lung cancer
     Route: 048
     Dates: start: 20210811, end: 20211006
  4. NITAZOXANIDE [Concomitant]
     Active Substance: NITAZOXANIDE
  5. INVESTIGATIONAL PRODUCT [Concomitant]
     Active Substance: INVESTIGATIONAL PRODUCT

REACTIONS (25)
  - Dehydration [Unknown]
  - Asthenia [Recovering/Resolving]
  - Cataract [Unknown]
  - Neoplasm progression [Not Recovered/Not Resolved]
  - Nausea [Recovering/Resolving]
  - Skin reaction [Unknown]
  - Fall [Unknown]
  - Joint injury [Unknown]
  - Abdominal pain [Recovering/Resolving]
  - Head injury [Unknown]
  - Eye contusion [Unknown]
  - Arthropathy [Unknown]
  - Pruritus [Unknown]
  - Diarrhoea [Not Recovered/Not Resolved]
  - Rash [Recovering/Resolving]
  - Weight decreased [Unknown]
  - Condition aggravated [Unknown]
  - Fatigue [Not Recovered/Not Resolved]
  - Gastrointestinal bacterial overgrowth [Not Recovered/Not Resolved]
  - Insomnia [Recovering/Resolving]
  - Nightmare [Unknown]
  - Night sweats [Unknown]
  - Vomiting [Not Recovered/Not Resolved]
  - Constipation [Unknown]
  - Dyspnoea [Unknown]

NARRATIVE: CASE EVENT DATE: 20210301
